FAERS Safety Report 4567684-9 (Version None)
Quarter: 2005Q1

REPORT INFORMATION
  Report Type: 
  Country: None (occurrence: None)
  Receive Date: 20050202
  Receipt Date: 20050120
  Transmission Date: 20050727
  Serious: Yes (Other)
  Sender: FDA-Public Use
  Company Number: US-JNJFOC-20050106183

PATIENT
  Sex: Female
  Weight: 70.31 kg

DRUGS (5)
  1. REMICADE [Suspect]
     Route: 042
  2. METHOTREXATE [Concomitant]
     Route: 049
  3. ADVIL [Concomitant]
     Indication: PAIN
  4. ALEVE [Concomitant]
     Dosage: 1 TABLET AS NEEDED
     Route: 049
  5. PLAQUENIL [Concomitant]
     Route: 049

REACTIONS (1)
  - PULMONARY TUBERCULOSIS [None]
